FAERS Safety Report 8882345 (Version 2)
Quarter: 2012Q4

REPORT INFORMATION
  Report Type: 
  Country: US (occurrence: US)
  Receive Date: 20121102
  Receipt Date: 20121220
  Transmission Date: 20130627
  Serious: Yes (Death)
  Sender: FDA-Public Use
  Company Number: PHEH2012US021397

PATIENT
  Age: 50 Year
  Sex: Male
  Weight: 75 kg

DRUGS (4)
  1. ZOMETA [Suspect]
     Indication: MULTIPLE MYELOMA
     Dosage: 4 mg,daily
     Route: 042
     Dates: start: 20120313, end: 20121001
  2. BORTEZOMIB [Concomitant]
     Dosage: UNK UKN, UNK
     Route: 058
  3. REVLIMID [Concomitant]
     Dosage: UNK UKN, UNK
     Route: 048
  4. DEXAMETHASONE [Concomitant]
     Dosage: UNK UKN, UNK
     Route: 048

REACTIONS (1)
  - Death [Fatal]
